FAERS Safety Report 5733174-0 (Version None)
Quarter: 2008Q2

REPORT INFORMATION
  Report Type: 
  Country: None (occurrence: None)
  Receive Date: 20080507
  Receipt Date: 20080421
  Transmission Date: 20081010
  Serious: Yes (Other)
  Sender: FDA-Public Use
  Company Number: 2008S1000037

PATIENT
  Age: 52 Year
  Sex: Male

DRUGS (20)
  1. CUBICIN [Suspect]
     Indication: ENDOCARDITIS STAPHYLOCOCCAL
     Dosage: 350 MG, Q24H, IV
     Route: 042
     Dates: start: 20071219, end: 20080101
  2. NEUPOGEN [Suspect]
     Indication: GRANULOCYTE COUNT DECREASED
     Dates: start: 20071231, end: 20080101
  3. PANTOPRAZOLE SODIUM [Concomitant]
  4. CLEMASTINE FUMARATE [Concomitant]
  5. FUROSEMIDE [Concomitant]
  6. MARCUMAR [Concomitant]
  7. POTASSIUM CHLORIDE [Concomitant]
  8. OXAZEPAM [Concomitant]
  9. BETA BLOCKING AGENTS [Concomitant]
  10. GENTAMICIN [Concomitant]
  11. AMPICILLIN [Concomitant]
  12. PIRETANIDE [Concomitant]
  13. HYDROCORTISONE [Concomitant]
  14. METAMIZOLE [Concomitant]
  15. CEFTRIAXONE [Concomitant]
  16. FLOXACILLIN SODIUM [Concomitant]
  17. INSULIN [Concomitant]
  18. TRAMADOL HCL [Concomitant]
  19. VANCOMYCIN [Concomitant]
  20. RIFAMPICIN [Concomitant]

REACTIONS (1)
  - AGRANULOCYTOSIS [None]
